FAERS Safety Report 5703713-4 (Version None)
Quarter: 2008Q2

REPORT INFORMATION
  Report Type: 
  Country: None (occurrence: None)
  Receive Date: 20080413
  Receipt Date: 20080407
  Transmission Date: 20081010
  Serious: Yes (Other)
  Sender: FDA-Public Use
  Company Number: PHEH2006US03612

PATIENT

DRUGS (6)
  1. ZOMETA [Suspect]
     Dosage: 4 MG, UNK
     Dates: start: 20030131, end: 20051101
  2. ANTIBIOTICS [Concomitant]
     Indication: OSTEONECROSIS
     Dates: start: 20070601
  3. METHADONE HCL [Concomitant]
     Indication: DRUG DEPENDENCE
     Dates: start: 20000101
  4. AVASTIN [Concomitant]
  5. ADRIAMYCIN PFS [Concomitant]
  6. ZINECARD [Concomitant]

REACTIONS (10)
  - ANXIETY [None]
  - BONE CYST [None]
  - BONE FRAGMENTATION [None]
  - CENTRAL VENOUS CATHETERISATION [None]
  - DENTAL OPERATION [None]
  - INJURY [None]
  - METASTASES TO BONE [None]
  - OSTEONECROSIS [None]
  - PAIN IN JAW [None]
  - TOOTH DISORDER [None]
